FAERS Safety Report 10919145 (Version 3)
Quarter: 2015Q2

REPORT INFORMATION
  Report Type: Other
  Country: GB (occurrence: GB)
  Receive Date: 20150316
  Receipt Date: 20150430
  Transmission Date: 20150821
  Serious: Yes (Other)
  Sender: FDA-Public Use
  Company Number: GB-MYLANLABS-2015M1006909

PATIENT

DRUGS (11)
  1. TRAMADOL [Suspect]
     Active Substance: TRAMADOL
     Indication: OSTEOARTHRITIS
     Dosage: UNK
  2. CODEINE PHOSPHATE [Concomitant]
     Active Substance: CODEINE PHOSPHATE
     Dosage: UNK
  3. ASPIRIN                            /00002701/ [Concomitant]
     Active Substance: ASPIRIN
     Dosage: 75 MG, UNK
  4. STATIN                             /00036501/ [Concomitant]
     Active Substance: NYSTATIN
     Dosage: UNK
  5. DILTIAZEM [Concomitant]
     Active Substance: DILTIAZEM
     Dosage: UNK
  6. CITALOPRAM [Suspect]
     Active Substance: CITALOPRAM HYDROBROMIDE
     Indication: OSTEOARTHRITIS
     Dosage: 90 MG, UNK (ONE FOR 12 HOURS)
     Route: 048
     Dates: start: 2012, end: 20140309
  7. TRAMADOL [Suspect]
     Active Substance: TRAMADOL
     Indication: ANXIETY
     Dosage: UNK
  8. RAMIPRIL. [Concomitant]
     Active Substance: RAMIPRIL
     Indication: HYPERTENSION
     Dosage: UNK
  9. CITALOPRAM [Suspect]
     Active Substance: CITALOPRAM HYDROBROMIDE
     Indication: ANXIETY
     Dosage: 40 MG, UNK
     Route: 048
  10. OMEPRAZOLE. [Concomitant]
     Active Substance: OMEPRAZOLE
     Dosage: UNK
  11. TRAMADOL [Suspect]
     Active Substance: TRAMADOL
     Indication: ANALGESIC THERAPY
     Dosage: 100 MG, UNK
     Route: 048
     Dates: start: 2013, end: 20140309

REACTIONS (19)
  - Malaise [Recovered/Resolved]
  - Palpitations [Recovered/Resolved]
  - Drug interaction [Unknown]
  - Accidental overdose [Unknown]
  - Hyperhidrosis [Recovered/Resolved]
  - Loss of consciousness [Recovered/Resolved]
  - Speech disorder [Recovered/Resolved]
  - Feeling hot [Recovered/Resolved]
  - Tachycardia [Recovered/Resolved]
  - Tongue biting [Unknown]
  - Product packaging confusion [Unknown]
  - Bruxism [Recovered/Resolved]
  - Disorientation [Recovered/Resolved]
  - Unresponsive to stimuli [Recovered/Resolved]
  - Confusional state [Unknown]
  - Muscle rigidity [Recovered/Resolved]
  - Dizziness [Recovered/Resolved]
  - Skin discolouration [Recovered/Resolved]
  - Pallor [Recovered/Resolved]

NARRATIVE: CASE EVENT DATE: 20140308
